FAERS Safety Report 8416753-1 (Version None)
Quarter: 2012Q2

REPORT INFORMATION
  Report Type: 
  Country: None (occurrence: None)
  Receive Date: 20120323
  Receipt Date: 20110418
  Transmission Date: 20120825
  Serious: Yes (Hospitalization)
  Sender: FDA-Public Use
  Company Number: 163-21880-11023060

PATIENT
  Age: 51 Year
  Sex: Male
  Weight: 68.0396 kg

DRUGS (10)
  1. NAPROSYN [Concomitant]
  2. PERCOCET [Concomitant]
  3. POTASSIUM CHLORIDE [Concomitant]
  4. BENZONATATE [Concomitant]
  5. REVLIMID [Suspect]
     Indication: CHRONIC LYMPHOCYTIC LEUKAEMIA
     Dosage: 10 MG, DAILY FOR 21 DAYS, OFF 7, PO ; 10 MG, DAILY FOR 21 DAYS, OFF 7, PO
     Route: 048
     Dates: start: 20110329
  6. REVLIMID [Suspect]
     Indication: CHRONIC LYMPHOCYTIC LEUKAEMIA
     Dosage: 10 MG, DAILY FOR 21 DAYS, OFF 7, PO ; 10 MG, DAILY FOR 21 DAYS, OFF 7, PO
     Route: 048
     Dates: start: 20110131, end: 20110218
  7. NEXIUM [Concomitant]
  8. DEXAMETHASONE [Concomitant]
  9. XANAX [Concomitant]
  10. LASIX [Concomitant]

REACTIONS (8)
  - PAIN [None]
  - COUGH [None]
  - CHRONIC LYMPHOCYTIC LEUKAEMIA [None]
  - PANCYTOPENIA [None]
  - PYREXIA [None]
  - NO THERAPEUTIC RESPONSE [None]
  - RETROPERITONEAL LYMPHADENOPATHY [None]
  - SPLENOMEGALY [None]
